FAERS Safety Report 19631170 (Version 2)
Quarter: 2021Q3

REPORT INFORMATION
  Report Type: Spontaneous
  Country: BR (occurrence: BR)
  Receive Date: 20210729
  Receipt Date: 20210813
  Transmission Date: 20211014
  Serious: Yes (Life-Threatening, Other)
  Sender: FDA-Public Use
  Company Number: BR-B.I. PHARMACEUTICALS,INC./RIDGEFIELD-2021-BI-118064

PATIENT
  Age: 72 Year
  Sex: Female
  Weight: 73 kg

DRUGS (4)
  1. MINOTON [AMINOPHYLLINE] [Concomitant]
     Indication: ACUTE RESPIRATORY FAILURE
     Dosage: 10 ML (240 MG) INTRAVENOUSLY, FOR 1 MINUTE
  2. PERSANTIN AMPOULE [Suspect]
     Active Substance: DIPYRIDAMOLE
     Indication: STRESS ECHOCARDIOGRAM
     Dosage: DIPYRIDAMOLE?7 ML FOR 1 MINUTE?SOLUTION FOR INJECTION
     Route: 042
     Dates: start: 20210525
  3. SALBUTAMOL [Concomitant]
     Active Substance: ALBUTEROL
     Indication: ACUTE RESPIRATORY FAILURE
     Dosage: 100 MCG/DOSE
     Dates: start: 20210525
  4. KARDIA [DOBUTAMINE HYDROCHLORIDE] [Concomitant]
     Indication: SCAN MYOCARDIAL PERFUSION

REACTIONS (2)
  - Incorrect product administration duration [Recovered/Resolved]
  - Acute respiratory failure [Recovered/Resolved]

NARRATIVE: CASE EVENT DATE: 20210525
